FAERS Safety Report 24785734 (Version 1)
Quarter: 2024Q4

REPORT INFORMATION
  Report Type: Other
  Country: US (occurrence: US)
  Receive Date: 20241228
  Receipt Date: 20241228
  Transmission Date: 20250114
  Serious: Yes (Other)
  Sender: DEXCEL
  Company Number: US-DEXPHARM-2024-6224

PATIENT

DRUGS (1)
  1. DEXAMETHASONE [Suspect]
     Active Substance: DEXAMETHASONE
     Dosage: THIRTY MINUTES PRIOR TO DELIVERY, 4 MG OF INTRAVENOUS DEXAMETHASONE
     Route: 050

REACTIONS (2)
  - Foetal exposure during pregnancy [Recovered/Resolved]
  - False negative investigation result [Recovered/Resolved]
